FAERS Safety Report 19141578 (Version 6)
Quarter: 2021Q3

REPORT INFORMATION
  Report Type: Report from Study
  Country: GB (occurrence: GB)
  Receive Date: 20210415
  Receipt Date: 20210929
  Transmission Date: 20211014
  Serious: Yes (Hospitalization, Other)
  Sender: FDA-Public Use
  Company Number: GB-IPSEN BIOPHARMACEUTICALS, INC.-2021-00685

PATIENT
  Age: 49 Year
  Sex: Female

DRUGS (1)
  1. SOMATULINE AUTOGEL [Suspect]
     Active Substance: LANREOTIDE ACETATE
     Indication: NEUROENDOCRINE TUMOUR
     Dosage: 120 MG, Q3W (21 DAYS)
     Route: 058
     Dates: start: 20201027

REACTIONS (16)
  - Abnormal faeces [Unknown]
  - Flushing [Unknown]
  - Abdominal discomfort [Unknown]
  - Product administration error [Unknown]
  - Ascites [Unknown]
  - Off label use [Unknown]
  - Hospitalisation [Unknown]
  - Hot flush [Unknown]
  - Skin induration [Unknown]
  - Bowel movement irregularity [Unknown]
  - Product dose omission issue [Unknown]
  - Insomnia [Unknown]
  - Central nervous system infection [Unknown]
  - Mass [Unknown]
  - Injection site pain [Unknown]
  - Malaise [Unknown]

NARRATIVE: CASE EVENT DATE: 2020
